FAERS Safety Report 5841851-6 (Version None)
Quarter: 2008Q3

REPORT INFORMATION
  Report Type: 
  Country: None (occurrence: None)
  Receive Date: 20080811
  Receipt Date: 20080811
  Transmission Date: 20090109
  Serious: Yes (Hospitalization)
  Sender: FDA-Public Use
  Company Number: None

PATIENT
  Age: 63 Year
  Sex: Female
  Weight: 119.296 kg

DRUGS (14)
  1. AZITHROMYCIN [Suspect]
     Indication: CARDIAC FAILURE CONGESTIVE
     Dosage: 500MG DAY 1, 250MG DAY 2-5 EVERY 6 HOURS NASAL
     Route: 045
     Dates: start: 20080802, end: 20080805
  2. AZITHROMYCIN [Suspect]
     Indication: CHRONIC OBSTRUCTIVE PULMONARY DISEASE
     Dosage: 500MG DAY 1, 250MG DAY 2-5 EVERY 6 HOURS NASAL
     Route: 045
     Dates: start: 20080802, end: 20080805
  3. NEXIUM [Concomitant]
  4. FERROUS SULFATE TAB [Concomitant]
  5. EFFEXOR XR [Concomitant]
  6. THERA-M PLUS VITAMINES [Concomitant]
  7. SIMVASTATIN [Concomitant]
  8. DIPHENHYDRAMINE HCL [Concomitant]
  9. SOLU-MEDROL [Concomitant]
  10. TAGAMET [Concomitant]
  11. PERIACTIC [Concomitant]
  12. HYDROXYZINE [Concomitant]
  13. XOPENEX [Suspect]
     Indication: CARDIAC FAILURE CONGESTIVE
     Dosage: 1.25 MG EVERY 6 HOURS NASAL
     Route: 045
     Dates: start: 20080801, end: 20080807
  14. XOPENEX [Suspect]
     Indication: CHRONIC OBSTRUCTIVE PULMONARY DISEASE
     Dosage: 1.25 MG EVERY 6 HOURS NASAL
     Route: 045
     Dates: start: 20080801, end: 20080807

REACTIONS (2)
  - CONDITION AGGRAVATED [None]
  - RASH [None]
